FAERS Safety Report 19444047 (Version 1)
Quarter: 2021Q2

REPORT INFORMATION
  Report Type: Report from Study
  Country: NL (occurrence: NL)
  Receive Date: 20210621
  Receipt Date: 20210621
  Transmission Date: 20210717
  Serious: Yes (Death)
  Sender: FDA-Public Use
  Company Number: NL-VER-202100105

PATIENT
  Age: 77 Year
  Sex: Male

DRUGS (1)
  1. TRIPTORELIN PAMOATE [Suspect]
     Active Substance: TRIPTORELIN PAMOATE
     Indication: PROSTATE CANCER
     Dosage: OTHER BATCH NUMBER : T09539 AND T16451
     Route: 030
     Dates: start: 20170728

REACTIONS (1)
  - Death [Fatal]

NARRATIVE: CASE EVENT DATE: 20210430
